FAERS Safety Report 4327820-6 (Version None)
Quarter: 2004Q1

REPORT INFORMATION
  Report Type: 
  Country: None (occurrence: None)
  Receive Date: 20040331
  Receipt Date: 20040325
  Transmission Date: 20041129
  Serious: Yes (Hospitalization)
  Sender: FDA-Public Use
  Company Number: MX-BRISTOL-MYERS SQUIBB COMPANY-12543146

PATIENT
  Age: 69 Year
  Sex: Male

DRUGS (2)
  1. TEQUIN [Suspect]
     Indication: SINUSITIS
     Route: 048
     Dates: start: 20031213, end: 20031216
  2. GLUCOPHAGE [Concomitant]
     Route: 048

REACTIONS (1)
  - HYPERGLYCAEMIA [None]
